FAERS Safety Report 6655856-9 (Version None)
Quarter: 2010Q1

REPORT INFORMATION
  Report Type: 
  Country: None (occurrence: None)
  Receive Date: 20100329
  Receipt Date: 20100315
  Transmission Date: 20100710
  Serious: Yes (Other)
  Sender: FDA-Public Use
  Company Number: B0643341A

PATIENT
  Sex: Female

DRUGS (1)
  1. SORIATANE [Suspect]
     Indication: PSORIASIS
     Dosage: 20MG PER DAY
     Route: 048

REACTIONS (3)
  - NAIL DISORDER [None]
  - PRURITUS [None]
  - PSORIASIS [None]
